FAERS Safety Report 19812925 (Version 1)
Quarter: 2021Q3

REPORT INFORMATION
  Report Type: Spontaneous
  Country: US (occurrence: US)
  Receive Date: 20210909
  Receipt Date: 20210909
  Transmission Date: 20211014
  Serious: No
  Sender: FDA-Public Use
  Company Number: US-PERRIGO-20US011478

PATIENT

DRUGS (1)
  1. MINOXIDIL. [Suspect]
     Active Substance: MINOXIDIL
     Indication: ALOPECIA
     Dosage: UNKNOWN, BID
     Route: 061
     Dates: start: 2019

REACTIONS (7)
  - Seborrhoea [Unknown]
  - Dandruff [Unknown]
  - Alopecia [Recovered/Resolved]
  - Application site dryness [Unknown]
  - Application site pain [Unknown]
  - Application site pruritus [Unknown]
  - Product dose omission issue [Recovered/Resolved]

NARRATIVE: CASE EVENT DATE: 2019
